FAERS Safety Report 7968446-2 (Version None)
Quarter: 2011Q4

REPORT INFORMATION
  Report Type: 
  Country: None (occurrence: None)
  Receive Date: 20111209
  Receipt Date: 20111206
  Transmission Date: 20120403
  Serious: No
  Sender: FDA-Public Use
  Company Number: US-PFIZER INC-2011298210

PATIENT
  Sex: Female
  Weight: 52.154 kg

DRUGS (5)
  1. MAXALT [Concomitant]
     Indication: MIGRAINE WITH AURA
     Dosage: 25 MG, AS NEEDED
     Route: 048
  2. IBUPROFEN (ADVIL) [Suspect]
     Indication: MIGRAINE WITH AURA
     Dosage: 200 MG, 2X/DAY
     Route: 048
     Dates: start: 20111125, end: 20111206
  3. LEVOTHYROXINE [Concomitant]
     Indication: HYPOTHYROIDISM
     Dosage: 100 UG, DAILY
  4. MINOCYCLINE [Concomitant]
     Indication: INFECTED CYST
     Dosage: 100 MG, 2X/DAY
  5. SIMVASTATIN [Concomitant]
     Indication: BLOOD CHOLESTEROL INCREASED
     Dosage: 20 MG, DAILY

REACTIONS (1)
  - BLOOD URINE PRESENT [None]
